FAERS Safety Report 4743322-7 (Version None)
Quarter: 2005Q3

REPORT INFORMATION
  Report Type: 
  Country: None (occurrence: None)
  Receive Date: 20050811
  Receipt Date: 20050729
  Transmission Date: 20060218
  Serious: Yes (Hospitalization)
  Sender: FDA-Public Use
  Company Number: 2005US001027

PATIENT
  Age: 23 Year
  Sex: Male

DRUGS (9)
  1. PROGRAF [Suspect]
     Indication: PROPHYLAXIS AGAINST TRANSPLANT REJECTION
     Dosage: 6.00 MG, BID, ORAL
     Route: 048
  2. MYCOPHENOLATE MOFETIL (MYCOPHENOLATE MOFETIL) [Suspect]
     Indication: PROPHYLAXIS AGAINST TRANSPLANT REJECTION
     Dosage: 100.00 MG , BID, ORAL
     Route: 048
  3. PREDNISONE [Suspect]
     Indication: PROPHYLAXIS AGAINST TRANSPLANT REJECTION
     Dosage: 2.00 MG, UID/QD, ORAL
     Route: 048
  4. BACTRIM [Concomitant]
  5. FLUCONAZOLE [Concomitant]
  6. CLONIDINE [Concomitant]
  7. ACYCLOVIR [Concomitant]
  8. PEPCID [Concomitant]
  9. NORVASC  /DEN/(AMLODIPINE BESILATE) [Concomitant]

REACTIONS (2)
  - DISEASE RECURRENCE [None]
  - GLOMERULONEPHRITIS FOCAL [None]
